FAERS Safety Report 8234655-0 (Version None)
Quarter: 2012Q1

REPORT INFORMATION
  Report Type: 
  Country: None (occurrence: None)
  Receive Date: 20120326
  Receipt Date: 20120319
  Transmission Date: 20120608
  Serious: No
  Sender: FDA-Public Use
  Company Number: US-PFIZER INC-2012056819

PATIENT
  Sex: Female
  Weight: 54.9 kg

DRUGS (1)
  1. DEPO-PROVERA [Suspect]
     Indication: CONTRACEPTION
     Dosage: 150 MG, EVERY 11-12 WEEKS
     Route: 030
     Dates: start: 20110121, end: 20120227

REACTIONS (4)
  - PRURITUS [None]
  - SWELLING [None]
  - ERYTHEMA [None]
  - RASH PAPULAR [None]
